FAERS Safety Report 16796909 (Version 8)
Quarter: 2021Q3

REPORT INFORMATION
  Report Type: Report from Study
  Country: JP (occurrence: JP)
  Receive Date: 20190911
  Receipt Date: 20210830
  Transmission Date: 20211014
  Serious: Yes (Other)
  Sender: FDA-Public Use
  Company Number: JP-GILEAD-2019-0427747

PATIENT
  Age: 28 Year
  Sex: Male

DRUGS (11)
  1. HIRUDOID [Concomitant]
     Active Substance: GLYCOSAMINOGLYCANS
     Indication: DRY SKIN
     Dosage: DOSE UNKNOWN
     Route: 061
     Dates: start: 20160307, end: 20191115
  2. MIYA?BM [Concomitant]
     Active Substance: CLOSTRIDIUM BUTYRICUM SPORES STRAIN M-55
     Indication: ENTEROCOLITIS
     Dosage: DOSE UNKNOWN
     Route: 048
     Dates: start: 20190820, end: 201909
  3. TAKECAB [Suspect]
     Active Substance: VONOPRAZAN FUMARATE
     Indication: GASTRITIS
     Dosage: DOSE UNKNOWN
     Route: 048
     Dates: start: 20200217, end: 20200303
  4. BIOFERMIN R [Concomitant]
     Active Substance: DIETARY SUPPLEMENT\PROBIOTICS
     Indication: PRODUCT USED FOR UNKNOWN INDICATION
     Dosage: DOSE UNKNOWN
     Route: 048
     Dates: start: 20190308, end: 20190407
  5. GASCON [Concomitant]
     Active Substance: DIMETHICONE
     Indication: GASTRITIS
     Dosage: DOSE UNKNOWN
     Route: 048
     Dates: start: 20200217, end: 20200303
  6. SAWACILLIN [Concomitant]
     Active Substance: AMOXICILLIN
     Indication: SYPHILIS
     Dosage: DOSE UNKNOWN
     Route: 048
     Dates: start: 20190308, end: 20190407
  7. EMTRICITABINE/RILPIVIRINE/TENOFOVIR ALAFENAMIDE [Interacting]
     Active Substance: EMTRICITABINE\RILPIVIRINE HYDROCHLORIDE\TENOFOVIR ALAFENAMIDE FUMARATE
     Indication: HIV INFECTION
     Dosage: 1 DOSAGE FORM, QD
     Route: 048
     Dates: start: 20181002
  8. MAVIRET [Concomitant]
     Active Substance: GLECAPREVIR\PIBRENTASVIR
     Indication: HEPATITIS C
     Dosage: DOSE UNKNOWN
     Route: 048
     Dates: start: 20200805, end: 20200929
  9. EMTRICITABINE/RILPIVIRINE/TENOFOVIR DF [Suspect]
     Active Substance: EMTRICITABINE\RILPIVIRINE\TENOFOVIR DISOPROXIL FUMARATE
     Indication: HIV INFECTION
     Dosage: 1 DOSAGE FORM, QD
     Route: 048
     Dates: start: 20150731, end: 20181001
  10. SAWACILLIN [Concomitant]
     Active Substance: AMOXICILLIN
     Dosage: DOSE UNKNOWN
     Route: 048
     Dates: start: 20201030, end: 20201129
  11. BIOFERMIN R [Concomitant]
     Active Substance: DIETARY SUPPLEMENT\PROBIOTICS
     Dosage: DOSE UNKNOWN
     Route: 048
     Dates: start: 20201030, end: 20201129

REACTIONS (9)
  - Hepatitis C [Recovering/Resolving]
  - Genital herpes [Recovering/Resolving]
  - Contraindicated product administered [Unknown]
  - Dry skin [Recovering/Resolving]
  - Enterocolitis [Recovering/Resolving]
  - Syphilis [Recovering/Resolving]
  - Gastritis [Recovering/Resolving]
  - Seasonal allergy [Recovering/Resolving]
  - Off label use [Unknown]

NARRATIVE: CASE EVENT DATE: 20160307
